FAERS Safety Report 5213933-3 (Version None)
Quarter: 2007Q1

REPORT INFORMATION
  Report Type: 
  Country: None (occurrence: None)
  Receive Date: 20070117
  Receipt Date: 20061229
  Transmission Date: 20070707
  Serious: Yes (Life-Threatening)
  Sender: FDA-Public Use
  Company Number: DISGB-07-0013

PATIENT
  Age: 46 Year
  Sex: Female

DRUGS (57)
  1. DIPRIVAN [Suspect]
     Indication: ANAESTHESIA REVERSAL
     Dosage: INTRAVENOUS
     Route: 042
  2. DIPRIVAN [Suspect]
     Indication: ANTIBIOTIC PROPHYLAXIS
     Dosage: INTRAVENOUS
     Route: 042
  3. DIPRIVAN [Suspect]
     Indication: GENERAL ANAESTHESIA
     Dosage: INTRAVENOUS
     Route: 042
  4. DIPRIVAN [Suspect]
     Indication: HYPOTENSION
     Dosage: INTRAVENOUS
     Route: 042
  5. AMOXICILLIN [Suspect]
     Indication: ANAESTHESIA REVERSAL
  6. AMOXICILLIN [Suspect]
     Indication: ANTIBIOTIC PROPHYLAXIS
  7. AMOXICILLIN [Suspect]
     Indication: GENERAL ANAESTHESIA
  8. AMOXICILLIN [Suspect]
     Indication: HYPOTENSION
  9. DICLOFENAC (DICLOFENAC) [Suspect]
     Indication: ANAESTHESIA REVERSAL
     Dosage: 75 MG, INTRAVENOUS
     Route: 042
  10. DICLOFENAC (DICLOFENAC) [Suspect]
     Indication: ANTIBIOTIC PROPHYLAXIS
     Dosage: 75 MG, INTRAVENOUS
     Route: 042
  11. DICLOFENAC (DICLOFENAC) [Suspect]
     Indication: GENERAL ANAESTHESIA
     Dosage: 75 MG, INTRAVENOUS
     Route: 042
  12. DICLOFENAC (DICLOFENAC) [Suspect]
     Indication: HYPOTENSION
     Dosage: 75 MG, INTRAVENOUS
     Route: 042
  13. EPHEDRINE SUL CAP [Suspect]
     Indication: ANAESTHESIA REVERSAL
     Dosage: (ONCE)
  14. EPHEDRINE SUL CAP [Suspect]
     Indication: ANTIBIOTIC PROPHYLAXIS
     Dosage: (ONCE)
  15. EPHEDRINE SUL CAP [Suspect]
     Indication: GENERAL ANAESTHESIA
     Dosage: (ONCE)
  16. EPHEDRINE SUL CAP [Suspect]
     Indication: HYPOTENSION
     Dosage: (ONCE)
  17. FENTANYL [Suspect]
     Indication: ANAESTHESIA REVERSAL
  18. FENTANYL [Suspect]
     Indication: ANTIBIOTIC PROPHYLAXIS
  19. FENTANYL [Suspect]
     Indication: GENERAL ANAESTHESIA
  20. FENTANYL [Suspect]
     Indication: HYPOTENSION
  21. GLYCOPYRROLATE [Suspect]
     Indication: ANAESTHESIA REVERSAL
  22. GLYCOPYRROLATE [Suspect]
     Indication: ANTIBIOTIC PROPHYLAXIS
  23. GLYCOPYRROLATE [Suspect]
     Indication: GENERAL ANAESTHESIA
  24. GLYCOPYRROLATE [Suspect]
     Indication: HYPOTENSION
  25. ISOFLURANE [Suspect]
     Indication: ANAESTHESIA REVERSAL
  26. ISOFLURANE [Suspect]
     Indication: ANTIBIOTIC PROPHYLAXIS
  27. ISOFLURANE [Suspect]
     Indication: GENERAL ANAESTHESIA
  28. ISOFLURANE [Suspect]
     Indication: HYPOTENSION
  29. MORPHINE [Concomitant]
     Indication: ANAESTHESIA REVERSAL
  30. MORPHINE [Concomitant]
     Indication: ANTIBIOTIC PROPHYLAXIS
  31. MORPHINE [Concomitant]
     Indication: GENERAL ANAESTHESIA
  32. MORPHINE [Concomitant]
     Indication: HYPOTENSION
  33. NEOSTIGMINE (NEOSTIGMINE) [Suspect]
     Indication: ANAESTHESIA REVERSAL
  34. NEOSTIGMINE (NEOSTIGMINE) [Suspect]
     Indication: ANTIBIOTIC PROPHYLAXIS
  35. NEOSTIGMINE (NEOSTIGMINE) [Suspect]
     Indication: GENERAL ANAESTHESIA
  36. NEOSTIGMINE (NEOSTIGMINE) [Suspect]
     Indication: HYPOTENSION
  37. NITROUS OXIDE W/ OXYGEN [Suspect]
     Indication: ANAESTHESIA REVERSAL
  38. NITROUS OXIDE W/ OXYGEN [Suspect]
     Indication: ANTIBIOTIC PROPHYLAXIS
  39. NITROUS OXIDE W/ OXYGEN [Suspect]
     Indication: GENERAL ANAESTHESIA
  40. NITROUS OXIDE W/ OXYGEN [Suspect]
     Indication: HYPOTENSION
  41. ONDANSETRON HCL [Suspect]
     Indication: ANAESTHESIA REVERSAL
     Dosage: 4 MG (UNK)
  42. ONDANSETRON HCL [Suspect]
     Indication: ANTIBIOTIC PROPHYLAXIS
     Dosage: 4 MG (UNK)
  43. ONDANSETRON HCL [Suspect]
     Indication: GENERAL ANAESTHESIA
     Dosage: 4 MG (UNK)
  44. ONDANSETRON HCL [Suspect]
     Indication: HYPOTENSION
     Dosage: 4 MG (UNK)
  45. OXYGEN (OXYGEN) [Suspect]
     Indication: ANAESTHESIA REVERSAL
  46. OXYGEN (OXYGEN) [Suspect]
     Indication: ANTIBIOTIC PROPHYLAXIS
  47. OXYGEN (OXYGEN) [Suspect]
     Indication: GENERAL ANAESTHESIA
  48. OXYGEN (OXYGEN) [Suspect]
     Indication: HYPOTENSION
  49. VECURONIUM BROMIDE [Suspect]
     Indication: ANAESTHESIA REVERSAL
  50. VECURONIUM BROMIDE [Suspect]
     Indication: ANTIBIOTIC PROPHYLAXIS
  51. VECURONIUM BROMIDE [Suspect]
     Indication: GENERAL ANAESTHESIA
  52. VECURONIUM BROMIDE [Suspect]
     Indication: HYPOTENSION
  53. CO-DYDRAMOL (PARAMOL-118) [Concomitant]
  54. DIAZEPAM [Concomitant]
  55. ESCITALOPRAM OXALATE [Concomitant]
  56. NORETHINDRONE ACETATE [Concomitant]
  57. ZOLPIDEM TARTRATE [Concomitant]

REACTIONS (10)
  - ABDOMINAL DISTENSION [None]
  - ACUTE HEPATIC FAILURE [None]
  - COAGULOPATHY [None]
  - HYPOTENSION [None]
  - HYPOXIA [None]
  - POST PROCEDURAL COMPLICATION [None]
  - SOMNOLENCE [None]
  - STRIDOR [None]
  - TACHYCARDIA [None]
  - TACHYPNOEA [None]
